FAERS Safety Report 18445280 (Version 2)
Quarter: 2020Q4

REPORT INFORMATION
  Report Type: Report from Study
  Country: US (occurrence: US)
  Receive Date: 20201030
  Receipt Date: 20201113
  Transmission Date: 20210114
  Serious: Yes (Hospitalization)
  Sender: FDA-Public Use
  Company Number: US-PFIZER INC-2020417573

PATIENT
  Age: 70 Year
  Sex: Male
  Weight: 95.3 kg

DRUGS (38)
  1. FAMOTIDINE. [Concomitant]
     Active Substance: FAMOTIDINE
     Indication: PROPHYLAXIS
  2. FLUCONAZOLE. [Concomitant]
     Active Substance: FLUCONAZOLE
     Indication: PROPHYLAXIS
  3. TRAMADOL. [Concomitant]
     Active Substance: TRAMADOL
     Indication: PROPHYLAXIS
  4. DAPTOMYCIN. [Concomitant]
     Active Substance: DAPTOMYCIN
     Indication: PROPHYLAXIS
     Dosage: UNK
     Dates: end: 20200920
  5. ATIVAN [Concomitant]
     Active Substance: LORAZEPAM
     Indication: PROPHYLAXIS
  6. POTASSIUM CHLORIDE. [Concomitant]
     Active Substance: POTASSIUM CHLORIDE
  7. ETOPOSIDE. [Suspect]
     Active Substance: ETOPOSIDE
     Indication: NON-HODGKIN^S LYMPHOMA
     Dosage: INJECTION, 380 MG
     Route: 042
     Dates: start: 20200904, end: 20200907
  8. PROCHLORPERAZINE MALEATE. [Concomitant]
     Active Substance: PROCHLORPERAZINE MALEATE
     Indication: PROPHYLAXIS
  9. ETOPOSIDE. [Suspect]
     Active Substance: ETOPOSIDE
     Dosage: INJECTION, 210 MG, CYCLE 2
     Route: 042
     Dates: start: 20200707, end: 20200709
  10. DEXAMETHASONE. [Concomitant]
     Active Substance: DEXAMETHASONE
     Indication: PROPHYLAXIS
  11. ACETAMINOPHEN. [Concomitant]
     Active Substance: ACETAMINOPHEN
     Indication: PROPHYLAXIS
  12. ERTAPENEM. [Concomitant]
     Active Substance: ERTAPENEM SODIUM
     Indication: PROPHYLAXIS
  13. RITUXIMAB. [Suspect]
     Active Substance: RITUXIMAB
     Dosage: INJECTION, 800 MG, CYCLE 2
     Route: 042
     Dates: start: 20200707, end: 20200707
  14. ETOPOSIDE. [Suspect]
     Active Substance: ETOPOSIDE
     Indication: NON-HODGKIN^S LYMPHOMA
     Dosage: INJECTION, 210 MG, CYCLE 1
     Route: 042
     Dates: start: 20200620, end: 20200622
  15. MELPHALAN. [Suspect]
     Active Substance: MELPHALAN
     Indication: NON-HODGKIN^S LYMPHOMA
     Dosage: INJECTION, 295 MG
     Route: 042
     Dates: start: 20200908, end: 20200908
  16. IFOSFAMIDE. [Suspect]
     Active Substance: IFOSFAMIDE
     Indication: NON-HODGKIN^S LYMPHOMA
     Dosage: INJECTION, 10500 MG, CYCLE 1
     Route: 042
     Dates: start: 20200621, end: 20200622
  17. IFOSFAMIDE. [Suspect]
     Active Substance: IFOSFAMIDE
     Dosage: INJECTION, 10500 MG, CYCLE 3
     Route: 042
     Dates: start: 20200806, end: 20200807
  18. LEVOFLOXACIN. [Concomitant]
     Active Substance: LEVOFLOXACIN
     Indication: PROPHYLAXIS
  19. LOPERAMIDE [Concomitant]
     Active Substance: LOPERAMIDE
     Indication: PROPHYLAXIS
  20. CYTARABINE. [Suspect]
     Active Substance: CYTARABINE
     Indication: NON-HODGKIN^S LYMPHOMA
     Dosage: 380 MG
     Route: 042
     Dates: start: 20200904, end: 20200907
  21. ETOPOSIDE. [Suspect]
     Active Substance: ETOPOSIDE
     Dosage: INJECTION, 210 MG, CYCLE 3
     Route: 042
     Dates: start: 20200805, end: 20200807
  22. IFOSFAMIDE. [Suspect]
     Active Substance: IFOSFAMIDE
     Dosage: INJECTION, 10500 MG, CYCLE 2
     Route: 042
     Dates: start: 20200708, end: 20200709
  23. ACYCLOVIR [ACICLOVIR] [Concomitant]
     Active Substance: ACYCLOVIR
     Indication: PROPHYLAXIS
  24. ALLOPURINOL. [Concomitant]
     Active Substance: ALLOPURINOL
     Indication: PROPHYLAXIS
  25. BENADRYL [Concomitant]
     Active Substance: DIPHENHYDRAMINE HYDROCHLORIDE
     Indication: PROPHYLAXIS
  26. SALIVA MAX [Concomitant]
     Indication: PROPHYLAXIS
  27. CARBOPLATIN. [Suspect]
     Active Substance: CARBOPLATIN
     Dosage: 700 MG, CYCLE 2
     Route: 042
     Dates: start: 20200708, end: 20200708
  28. RITUXIMAB. [Suspect]
     Active Substance: RITUXIMAB
     Indication: NON-HODGKIN^S LYMPHOMA
     Dosage: INJECTION, 800 MG, CYCLE 1
     Route: 042
     Dates: start: 20200620, end: 20200620
  29. ONDANSETRON [Concomitant]
     Active Substance: ONDANSETRON
     Indication: PROPHYLAXIS
  30. URSODIOL. [Concomitant]
     Active Substance: URSODIOL
     Indication: PROPHYLAXIS
  31. MEROPENEM. [Concomitant]
     Active Substance: MEROPENEM
     Indication: EVIDENCE BASED TREATMENT
  32. CEFEPIME [Concomitant]
     Active Substance: CEFEPIME HYDROCHLORIDE
     Indication: PROPHYLAXIS
  33. CARBOPLATIN. [Suspect]
     Active Substance: CARBOPLATIN
     Indication: NON-HODGKIN^S LYMPHOMA
     Dosage: 700 MG, CYCLE 1
     Route: 042
     Dates: start: 20200621, end: 20200621
  34. CARBOPLATIN. [Suspect]
     Active Substance: CARBOPLATIN
     Dosage: 700 MG, CYCLE 3
     Route: 042
     Dates: start: 20200806, end: 20200806
  35. RITUXIMAB. [Suspect]
     Active Substance: RITUXIMAB
     Dosage: INJECTION, 800 MG, CYCLE 3
     Route: 042
     Dates: start: 20200805, end: 20200805
  36. CARMUSTINE. [Suspect]
     Active Substance: CARMUSTINE
     Indication: NON-HODGKIN^S LYMPHOMA
     Dosage: INJECTION, 285 MG
     Route: 042
     Dates: start: 20200903, end: 20200904
  37. DAPTOMYCIN. [Concomitant]
     Active Substance: DAPTOMYCIN
     Indication: EVIDENCE BASED TREATMENT
  38. MEROPENEM. [Concomitant]
     Active Substance: MEROPENEM
     Indication: PROPHYLAXIS
     Dosage: UNK
     Dates: end: 20200920

REACTIONS (2)
  - Neutropenia [Recovered/Resolved]
  - Atrial fibrillation [Recovered/Resolved]

NARRATIVE: CASE EVENT DATE: 20200915
